FAERS Safety Report 21386619 (Version 2)
Quarter: 2022Q4

REPORT INFORMATION
  Report Type: Spontaneous
  Country: US (occurrence: US)
  Receive Date: 20220928
  Receipt Date: 20221007
  Transmission Date: 20230113
  Serious: Yes (Other)
  Sender: FDA-Public Use
  Company Number: US-FreseniusKabi-FK202212860

PATIENT
  Age: 50 Year
  Sex: Male

DRUGS (2)
  1. HEPARIN SODIUM IN DEXTROSE [Suspect]
     Active Substance: HEPARIN SODIUM
     Indication: Product used for unknown indication
     Route: 065
     Dates: start: 20220303, end: 20221007
  2. HEPARIN SODIUM IN DEXTROSE [Suspect]
     Active Substance: HEPARIN SODIUM
     Route: 065
     Dates: start: 20220303, end: 20220307

REACTIONS (1)
  - Heparin-induced thrombocytopenia [Unknown]
